FAERS Safety Report 20495415 (Version 1)
Quarter: 2022Q1

REPORT INFORMATION
  Report Type: Spontaneous
  Country: US (occurrence: None)
  Receive Date: 20220221
  Receipt Date: 20220221
  Transmission Date: 20220423
  Serious: No
  Sender: FDA-Public Use
  Company Number: 2022A056686

PATIENT
  Age: 730 Month
  Sex: Male
  Weight: 83.9 kg

DRUGS (1)
  1. PULMICORT FLEXHALER [Suspect]
     Active Substance: BUDESONIDE
     Indication: Pneumonia
     Route: 055
     Dates: start: 20220119, end: 202201

REACTIONS (7)
  - Fatigue [Unknown]
  - Paraesthesia [Recovered/Resolved]
  - Oxygen saturation decreased [Recovered/Resolved]
  - Product dose omission issue [Unknown]
  - Off label use [Recovered/Resolved]
  - Device use issue [Recovered/Resolved]
  - Device malfunction [Unknown]

NARRATIVE: CASE EVENT DATE: 20220101
